FAERS Safety Report 8401544-8 (Version None)
Quarter: 2012Q2

REPORT INFORMATION
  Report Type: 
  Country: None (occurrence: None)
  Receive Date: 20120529
  Receipt Date: 20120511
  Transmission Date: 20120825
  Serious: Yes (Hospitalization, Other)
  Sender: FDA-Public Use
  Company Number: 09-AUR-10300

PATIENT
  Age: 51 Year
  Sex: Male

DRUGS (6)
  1. AMLODIPINE [Concomitant]
  2. VITAMINS (VITAMINS /90003601/ [Concomitant]
  3. INSULIN (INSULIN) [Concomitant]
  4. ACETYLSALICYLIC AICID (ACETYLSALICYLIC ACID) [Concomitant]
  5. METFFORMIN HYDROCHLORIDE [Suspect]
     Indication: PRODUCT USED FOR UNKNOWN INDICATION
     Dosage: (850 MG,1 D)
  6. REPAGLINIDE [Suspect]
     Indication: PRODUCT USED FOR UNKNOWN INDICATION

REACTIONS (15)
  - BLOOD ALBUMIN DECREASED [None]
  - BLOOD PHOSPHORUS DECREASED [None]
  - MYOCLONUS [None]
  - TRISMUS [None]
  - BLOOD GLUCOSE INCREASED [None]
  - HEMIPARESIS [None]
  - BLOOD POTASSIUM DECREASED [None]
  - BLOOD CHLORIDE DECREASED [None]
  - CARBON DIOXIDE DECREASED [None]
  - GLYCOSYLATED HAEMOGLOBIN INCREASED [None]
  - BLOOD CREATININE INCREASED [None]
  - ENCEPHALOPATHY [None]
  - DYSARTHRIA [None]
  - GAIT DISTURBANCE [None]
  - HAEMODIALYSIS [None]
